FAERS Safety Report 15001383 (Version 1)
Quarter: 2018Q2

REPORT INFORMATION
  Report Type: Report from Study
  Country: JP (occurrence: JP)
  Receive Date: 20180612
  Receipt Date: 20180612
  Transmission Date: 20180711
  Serious: Yes (Life-Threatening)
  Sender: FDA-Public Use
  Company Number: JP-DSJP-DSJ-2017-118282

PATIENT

DRUGS (4)
  1. ADEMPAS [Concomitant]
     Active Substance: RIOCIGUAT
     Dosage: 3.0MG/DAY
     Route: 048
     Dates: start: 20151210
  2. EDOXABAN [Suspect]
     Active Substance: EDOXABAN TOSYLATE
     Indication: PULMONARY EMBOLISM
     Dosage: 30 MG, QD
     Route: 048
     Dates: start: 20151120, end: 201609
  3. PLAVIX [Concomitant]
     Active Substance: CLOPIDOGREL BISULFATE
     Dosage: 75MG/DAY
     Route: 048
     Dates: end: 20151203
  4. WARFARIN                           /00014803/ [Concomitant]
     Active Substance: WARFARIN
     Dosage: 1.75MG/DAY
     Route: 048
     Dates: start: 201609

REACTIONS (1)
  - Cardiac tamponade [Recovered/Resolved]

NARRATIVE: CASE EVENT DATE: 20160915
